FAERS Safety Report 16860702 (Version 5)
Quarter: 2020Q1

REPORT INFORMATION
  Report Type: Spontaneous
  Country: US (occurrence: US)
  Receive Date: 20190927
  Receipt Date: 20200103
  Transmission Date: 20200409
  Serious: Yes (Hospitalization)
  Sender: FDA-Public Use
  Company Number: US-KARYOPHARM-2019KPT000425

PATIENT

DRUGS (3)
  1. VARUBI [Concomitant]
     Active Substance: ROLAPITANT
     Dosage: UNK
  2. VARUBI [Concomitant]
     Active Substance: ROLAPITANT
     Indication: PLASMA CELL MYELOMA
     Dosage: 180 MG, 1X/2 WEEKS
     Route: 048
     Dates: start: 20190903
  3. XPOVIO [Suspect]
     Active Substance: SELINEXOR
     Indication: PLASMA CELL MYELOMA
     Dosage: 80 MG, WEEKLY
     Route: 048
     Dates: start: 20190802

REACTIONS (4)
  - Vomiting [Not Recovered/Not Resolved]
  - Nausea [Not Recovered/Not Resolved]
  - Influenza like illness [Unknown]
  - Weight decreased [Unknown]
